FAERS Safety Report 7319550 (Version 2)
Quarter: 2014Q3

REPORT INFORMATION
  Report Type: Spontaneous
  Country: US (occurrence: None)
  Receive Date: 20100224
  Receipt Date: 20140702
  Transmission Date: 20150326
  Serious: Yes (Hospitalization, Other)
  Sender: FDA-Public Use
  Company Number: 2010S1001108

PATIENT
  Age: 73 Year
  Sex: Female
  Weight: 71 kg

DRUGS (15)
  1. FOLIC ACID (FOLIC ACID) [Concomitant]
     Active Substance: FOLIC ACID
  2. PRAVASTATIN [Concomitant]
     Active Substance: PRAVASTATIN\PRAVASTATIN SODIUM
  3. FOSAMAX [Concomitant]
     Active Substance: ALENDRONATE SODIUM
  4. ZOLOFT [Concomitant]
     Active Substance: SERTRALINE HYDROCHLORIDE
  5. LASIX [Concomitant]
     Active Substance: FUROSEMIDE
  6. QUERCETIN (QUERCETIN) [Concomitant]
  7. PHOSPHO-SODA [Suspect]
     Active Substance: SODIUM PHOSPHATE, DIBASIC\SODIUM PHOSPHATE, MONOBASIC
     Indication: COLONOSCOPY
     Dosage: PO
     Route: 048
     Dates: start: 20070702, end: 20070703
  8. COREG [Concomitant]
     Active Substance: CARVEDILOL
  9. FIORICET (CAFFEINE, BUTALBITAL, PARACETAMOL) [Concomitant]
  10. ARMOUR THYROID (THYROID) [Concomitant]
  11. GLIPIZIDE (GLIPIZIDE) [Concomitant]
     Active Substance: GLIPIZIDE
  12. NITROFURANTOIN (NITROFURANTOIN) [Concomitant]
  13. AMOXICILLIN (AMOXICILLIN) [Concomitant]
     Active Substance: AMOXICILLIN
  14. DIOVAN [Concomitant]
     Active Substance: VALSARTAN
  15. ANLOIDINE (AMLODIPINE BESILATE) [Concomitant]

REACTIONS (3)
  - Renal failure [None]
  - Anaemia [None]
  - Renal disorder [None]

NARRATIVE: CASE EVENT DATE: 20070704
